FAERS Safety Report 10067511 (Version 2)
Quarter: 2014Q2

REPORT INFORMATION
  Report Type: Spontaneous
  Country: IT (occurrence: None)
  Receive Date: 20140407
  Receipt Date: 20140421
  Transmission Date: 20141212
  Serious: Yes (Hospitalization)
  Sender: FDA-Public Use
  Company Number: 2014AP002503

PATIENT
  Age: 72 Year
  Sex: Male

DRUGS (6)
  1. PAROXETINE HYDROCHLORIDE (PAROXETINE HYDROCHLORIDE) [Suspect]
     Dates: start: 20140226, end: 20140318
  2. COUMADINE (WARFARIN SODIUM) [Suspect]
     Indication: PRODUCT USED FOR UNKNOWN INDICATION
     Dates: start: 20070512, end: 20140318
  3. BENTELAN [Suspect]
     Indication: PRODUCT USED FOR UNKNOWN INDICATION
     Dates: start: 20140205, end: 20140210
  4. LUVION /00252501/ (CANRENOIC ACID) [Concomitant]
  5. SIMVASTATIN (SIMVASTATIN) [Concomitant]
  6. ZYLORIC (ALLOPURINOL) [Concomitant]

REACTIONS (5)
  - Haematemesis [None]
  - Melaena [None]
  - International normalised ratio increased [None]
  - Drug interaction [None]
  - Melaena [None]
